FAERS Safety Report 8387179-4 (Version None)
Quarter: 2012Q2

REPORT INFORMATION
  Report Type: 
  Country: None (occurrence: None)
  Receive Date: 20120525
  Receipt Date: 20120510
  Transmission Date: 20120825
  Serious: Yes (Hospitalization)
  Sender: FDA-Public Use
  Company Number: US-ROCHE-1027046

PATIENT
  Sex: Male
  Weight: 81.72 kg

DRUGS (9)
  1. BOCEPREVIR [Suspect]
     Indication: HEPATITIS C
     Dates: start: 20110930, end: 20120130
  2. INSULIN [Concomitant]
  3. LISINOPRIL [Concomitant]
     Indication: HYPERTENSION
     Route: 048
  4. ATIVAN [Concomitant]
     Indication: ANXIETY
     Route: 048
  5. COPEGUS [Suspect]
     Route: 023
     Dates: end: 20120130
  6. COPEGUS [Suspect]
     Indication: HEPATITIS C
     Route: 023
     Dates: start: 20110930, end: 20120130
  7. FENOFIBRATE [Concomitant]
     Indication: LIPIDS INCREASED
     Route: 048
  8. PEGASYS [Suspect]
     Indication: HEPATITIS C
     Route: 058
     Dates: start: 20111001, end: 20120105
  9. RISPERIDONE [Concomitant]
     Dosage: INDICATION:BIPOLAR
     Route: 048

REACTIONS (6)
  - CHILLS [None]
  - RENAL FAILURE [None]
  - NO THERAPEUTIC RESPONSE [None]
  - THROMBOCYTOPENIA [None]
  - PNEUMONIA [None]
  - ANAEMIA [None]
